FAERS Safety Report 23688512 (Version 3)
Quarter: 2024Q3

REPORT INFORMATION
  Report Type: Report from Study
  Country: US (occurrence: US)
  Receive Date: 20240329
  Receipt Date: 20240828
  Transmission Date: 20241017
  Serious: Yes (Hospitalization, Other)
  Sender: TAKEDA
  Company Number: US-TAKEDA-2024TUS029194

PATIENT
  Age: 46 Year
  Sex: Female

DRUGS (8)
  1. TEDUGLUTIDE [Suspect]
     Active Substance: TEDUGLUTIDE
     Indication: Intestinal obstruction
     Dosage: 3.1 MILLIGRAM, QOD
     Route: 058
     Dates: start: 20210706
  2. TEDUGLUTIDE [Suspect]
     Active Substance: TEDUGLUTIDE
     Indication: Intestinal obstruction
     Dosage: 3.1 MILLIGRAM, QOD
     Route: 058
     Dates: start: 20210706
  3. TEDUGLUTIDE [Suspect]
     Active Substance: TEDUGLUTIDE
     Indication: Intestinal obstruction
     Dosage: 3.1 MILLIGRAM, QOD
     Route: 058
     Dates: start: 20210706
  4. TEDUGLUTIDE [Suspect]
     Active Substance: TEDUGLUTIDE
     Indication: Intestinal obstruction
     Dosage: 3.1 MILLIGRAM, QOD
     Route: 058
     Dates: start: 20210706
  5. TEDUGLUTIDE [Suspect]
     Active Substance: TEDUGLUTIDE
     Dosage: 3.1 MILLIGRAM, QOD
     Route: 058
     Dates: start: 202305
  6. TEDUGLUTIDE [Suspect]
     Active Substance: TEDUGLUTIDE
     Dosage: 3.1 MILLIGRAM, QOD
     Route: 058
     Dates: start: 202305
  7. TEDUGLUTIDE [Suspect]
     Active Substance: TEDUGLUTIDE
     Dosage: 3.1 MILLIGRAM, QOD
     Route: 058
     Dates: start: 202305
  8. TEDUGLUTIDE [Suspect]
     Active Substance: TEDUGLUTIDE
     Dosage: 3.1 MILLIGRAM, QOD
     Route: 058
     Dates: start: 202305

REACTIONS (6)
  - Fall [Unknown]
  - Bacteraemia [Unknown]
  - Fungaemia [Unknown]
  - Vascular access site haemorrhage [Unknown]
  - Vascular access site discharge [Unknown]
  - Product use in unapproved indication [Unknown]

NARRATIVE: CASE EVENT DATE: 20210706
